FAERS Safety Report 9855170 (Version 4)
Quarter: 2014Q1

REPORT INFORMATION
  Report Type: Spontaneous
  Country: US (occurrence: US)
  Receive Date: 20140130
  Receipt Date: 20140218
  Transmission Date: 20141002
  Serious: Yes (Other)
  Sender: FDA-Public Use
  Company Number: US-PFIZER INC-2014027334

PATIENT
  Age: 58 Year
  Sex: Female

DRUGS (3)
  1. RAMIPRIL [Suspect]
     Indication: NEPHROTIC SYNDROME
     Dosage: 10 MG, DAILY
     Route: 065
  2. PREDNISONE [Suspect]
     Indication: NEPHROTIC SYNDROME
     Dosage: 10 MG, DAILY
     Route: 048
  3. PREDNISONE [Suspect]
     Dosage: 10 MG, ALTERNATE DAY
     Route: 048

REACTIONS (3)
  - Off label use [Unknown]
  - Drug resistance [Unknown]
  - Nephrotic syndrome [Recovered/Resolved]
